FAERS Safety Report 9935037 (Version 4)
Quarter: 2014Q1

REPORT INFORMATION
  Report Type: Spontaneous
  Country: US (occurrence: US)
  Receive Date: 20140228
  Receipt Date: 20140326
  Transmission Date: 20141002
  Serious: Yes (Other)
  Sender: FDA-Public Use
  Company Number: US-PFIZER INC-2014057776

PATIENT
  Sex: Female

DRUGS (2)
  1. MOTRIN IB [Suspect]
     Indication: BREAKTHROUGH PAIN
     Dosage: UNK
     Route: 048
  2. OXYCONTIN [Concomitant]
     Indication: PAIN
     Route: 065

REACTIONS (2)
  - Ulcer haemorrhage [Unknown]
  - Product quality issue [Unknown]
